FAERS Safety Report 23154827 (Version 2)
Quarter: 2023Q4

REPORT INFORMATION
  Report Type: Spontaneous
  Country: RO (occurrence: RO)
  Receive Date: 20231107
  Receipt Date: 20231109
  Transmission Date: 20240109
  Serious: Yes (Other)
  Sender: FDA-Public Use
  Company Number: RO-BRISTOL-MYERS SQUIBB COMPANY-2023-158954

PATIENT
  Age: 45 Year
  Sex: Male
  Weight: 70 kg

DRUGS (2)
  1. OPDIVO [Suspect]
     Active Substance: NIVOLUMAB
     Indication: Clear cell renal cell carcinoma
     Dosage: DOSE : UNAVAILABLE;     4 CYCLES, 3MG/KG
     Route: 042
     Dates: start: 20210811, end: 202111
  2. YERVOY [Suspect]
     Active Substance: IPILIMUMAB
     Indication: Clear cell renal cell carcinoma
     Dosage: 4 DOSES,1 MG/KG
     Route: 042

REACTIONS (1)
  - Clostridium colitis [Unknown]

NARRATIVE: CASE EVENT DATE: 20210820
